FAERS Safety Report 7759736-7 (Version None)
Quarter: 2011Q3

REPORT INFORMATION
  Report Type: 
  Country: None (occurrence: None)
  Receive Date: 20110919
  Receipt Date: 20110908
  Transmission Date: 20111222
  Serious: Yes (Other)
  Sender: FDA-Public Use
  Company Number: US-UCBSA-041042

PATIENT
  Sex: Male
  Weight: 87.7 kg

DRUGS (12)
  1. SYNTHROID [Concomitant]
     Indication: HYPOTHYROIDISM
     Route: 048
     Dates: start: 20080101
  2. CARISOPRODOL [Concomitant]
     Indication: PAIN
     Route: 048
     Dates: start: 20110301
  3. VALIUM [Concomitant]
  4. ASPIRIN [Concomitant]
     Dosage: 325 MG
  5. CERTOLIZUMAB PEGOL [Suspect]
     Indication: RHEUMATOID ARTHRITIS
     Dosage: NO. OF DOSES RECEIVED: 2; 400 MG 28/JUN/2011-25/JUL/2011,NO. OF DOSES RECEIVED: 3
     Route: 058
     Dates: start: 20110808, end: 20110906
  6. LIDODERM [Concomitant]
     Indication: PAIN
     Dosage: UNKNOWN DOSE
     Route: 062
     Dates: start: 20110101
  7. METHOTREXATE [Concomitant]
     Indication: RHEUMATOID ARTHRITIS
     Route: 058
     Dates: start: 20091215, end: 20110705
  8. OXYCONTIN IR [Concomitant]
     Indication: PAIN
     Route: 048
     Dates: start: 20100101
  9. METHOTREXATE [Concomitant]
     Dosage: 15 MG AS NECESSARY
     Route: 058
     Dates: start: 20110712
  10. AZULFIDINE [Concomitant]
     Indication: RHEUMATOID ARTHRITIS
     Route: 048
     Dates: start: 20110323
  11. FOLIC ACID [Concomitant]
     Indication: RHEUMATOID ARTHRITIS
     Route: 048
     Dates: start: 20100201
  12. MULTI-VITAMIN [Concomitant]
     Indication: MEDICAL DIET
     Dosage: 1 TABLET
     Route: 048
     Dates: start: 20000101

REACTIONS (1)
  - BASAL CELL CARCINOMA [None]
